FAERS Safety Report 24900610 (Version 2)
Quarter: 2025Q4

REPORT INFORMATION
  Report Type: Spontaneous
  Country: EU (occurrence: EU)
  Receive Date: 20250129
  Receipt Date: 20251006
  Transmission Date: 20260118
  Serious: Yes (Other)
  Sender: GILEAD
  Company Number: None

PATIENT
  Age: 59 Year
  Sex: Female
  Weight: 68 kg

DRUGS (10)
  1. TRODELVY [Suspect]
     Active Substance: SACITUZUMAB GOVITECAN-HZIY
     Indication: Hormone receptor positive breast cancer
     Dosage: 10 MG/KG, Q1WK [200 MG]
     Route: 042
     Dates: start: 20240522
  2. RIVAROXABAN [Concomitant]
     Active Substance: RIVAROXABAN
     Indication: Deep vein thrombosis
     Dosage: 20 MG
  3. MORPHINE [Concomitant]
     Active Substance: MORPHINE
     Dosage: 1/2 CP 12/12H
  4. MORPHINE [Concomitant]
     Active Substance: MORPHINE
     Dosage: 1/2 CP 12/12H
  5. MORPHINE [Concomitant]
     Active Substance: MORPHINE
     Dosage: 1/2 CP 12/12H
  6. MORPHINE [Concomitant]
     Active Substance: MORPHINE
     Dosage: 1/2 CP 12/12H
  7. MORPHINE [Concomitant]
     Active Substance: MORPHINE
     Dosage: 1/2 CP 12/12H
  8. MORPHINE [Concomitant]
     Active Substance: MORPHINE
     Dosage: 1/2 CP 12/12H
  9. MORPHINE [Concomitant]
     Active Substance: MORPHINE
     Dosage: 1/2 CP 12/12H
  10. MORPHINE [Concomitant]
     Active Substance: MORPHINE
     Dosage: 1/2 CP 12/12H

REACTIONS (1)
  - Blood thyroid stimulating hormone increased [Not Recovered/Not Resolved]

NARRATIVE: CASE EVENT DATE: 20250108
